FAERS Safety Report 19881150 (Version 1)
Quarter: 2021Q3

REPORT INFORMATION
  Report Type: Spontaneous
  Country: US (occurrence: US)
  Receive Date: 20210924
  Receipt Date: 20210924
  Transmission Date: 20211014
  Serious: No
  Sender: FDA-Public Use
  Company Number: US-MYLANLABS-2021M1061497

PATIENT
  Sex: Male

DRUGS (1)
  1. SEMGLEE (INSULIN GLARGINE) [Suspect]
     Active Substance: INSULIN GLARGINE
     Indication: DIABETES MELLITUS
     Dosage: 100 INTERNATIONAL UNIT PER MILLILITRE, PM

REACTIONS (3)
  - Feeling abnormal [Not Recovered/Not Resolved]
  - Product quality issue [Recovering/Resolving]
  - Device issue [Unknown]
